FAERS Safety Report 5376228-3 (Version None)
Quarter: 2007Q3

REPORT INFORMATION
  Report Type: 
  Country: None (occurrence: None)
  Receive Date: 20070702
  Receipt Date: 20070620
  Transmission Date: 20080115
  Serious: Yes (Hospitalization)
  Sender: FDA-Public Use
  Company Number: HQWYE759622JUN07

PATIENT
  Sex: Male
  Weight: 80.81 kg

DRUGS (11)
  1. CORDARONE [Suspect]
     Indication: ATRIAL FIBRILLATION
     Route: 048
     Dates: start: 20070501, end: 20070101
  2. CORDARONE [Suspect]
     Route: 048
     Dates: start: 20070101, end: 20070101
  3. CORDARONE [Suspect]
     Route: 048
     Dates: start: 20070101, end: 20070101
  4. CORDARONE [Suspect]
     Route: 048
     Dates: start: 20070101, end: 20070612
  5. CORDARONE [Suspect]
     Route: 048
     Dates: start: 20070620
  6. COUMADIN [Concomitant]
     Route: 065
  7. CORDARONE [Suspect]
     Dosage: UNKNOWN
     Route: 042
     Dates: start: 20070612, end: 20070619
  8. ATIVAN [Concomitant]
     Route: 065
  9. ASPIRIN [Concomitant]
     Route: 065
  10. TOPRAL [Concomitant]
     Dosage: 2-50 MG TWICE A DAY
     Route: 065
  11. LOVENOX [Concomitant]
     Route: 065

REACTIONS (3)
  - COUGH [None]
  - DRUG INEFFECTIVE [None]
  - TACHYCARDIA [None]
